FAERS Safety Report 6068873-7 (Version None)
Quarter: 2009Q1

REPORT INFORMATION
  Report Type: 
  Country: None (occurrence: None)
  Receive Date: 20090206
  Receipt Date: 20090129
  Transmission Date: 20090719
  Serious: Yes (Hospitalization)
  Sender: FDA-Public Use
  Company Number: FR-WYE-H08112709

PATIENT
  Sex: Female

DRUGS (12)
  1. CORDARONE [Suspect]
     Indication: ATRIAL FIBRILLATION
     Dosage: 200 MG, FREQUENCY UNKNOWN
     Route: 048
  2. VORICONAZOLE [Interacting]
     Indication: FUNGAL INFECTION
     Dosage: DOSE UNKNOWN, 1 DOSE DAILY
     Route: 065
     Dates: start: 20071025, end: 20071027
  3. NEXIUM [Interacting]
     Indication: OESOPHAGITIS
     Dosage: DOSE UNKNOWN
     Route: 048
  4. DEROXAT [Interacting]
     Indication: DEPRESSION
     Dosage: DOSE UNKNOWN
     Route: 048
  5. ACETAMINOPHEN [Concomitant]
     Indication: PAIN
     Dosage: DOSE UNKNOWN
     Route: 048
  6. TARGOCID [Interacting]
     Indication: LUNG DISORDER
     Dosage: DOSE UNKNOWN
     Route: 048
  7. AMLOD [Concomitant]
     Indication: HYPERTENSION
     Dosage: DOSE UNKNOWN
     Route: 048
  8. LASILIX [Concomitant]
     Indication: HYPERTENSION
     Dosage: DOSE UNKNOWN
     Route: 048
  9. ATHYMIL [Concomitant]
     Indication: DEPRESSION
     Dosage: DOSE UNKNOWN
     Route: 048
  10. REMINYL [Concomitant]
     Indication: DEMENTIA ALZHEIMER'S TYPE
     Dosage: DOSE UNKNOWN
     Route: 048
  11. COUMADIN [Interacting]
     Indication: THROMBOPHLEBITIS
     Dosage: DOSE UNKNOWN
     Route: 048
     Dates: end: 20081027
  12. ROCEPHIN [Interacting]
     Indication: LUNG DISORDER
     Dosage: DOSE UNKNOWN
     Route: 065

REACTIONS (2)
  - DRUG INTERACTION [None]
  - INTERNATIONAL NORMALISED RATIO INCREASED [None]
